FAERS Safety Report 6108245-X (Version None)
Quarter: 2009Q1

REPORT INFORMATION
  Report Type: 
  Country: None (occurrence: None)
  Receive Date: 20090309
  Receipt Date: 20090130
  Transmission Date: 20090719
  Serious: Yes (Death)
  Sender: FDA-Public Use
  Company Number: US-TYCO HEALTHCARE/MALLINCKRODT-T200900359

PATIENT
  Age: 46 Year
  Sex: Male

DRUGS (4)
  1. OXYCODONE HCL [Suspect]
     Route: 048
  2. DIAZEPAM [Suspect]
     Route: 048
  3. TRAZODONE HCL [Suspect]
     Route: 048
  4. HYDROCODONE BITARTRATE [Suspect]
     Route: 048

REACTIONS (1)
  - CARDIO-RESPIRATORY ARREST [None]
